FAERS Safety Report 19704557 (Version 3)
Quarter: 2021Q3

REPORT INFORMATION
  Report Type: Spontaneous
  Country: DE (occurrence: DE)
  Receive Date: 20210816
  Receipt Date: 20210920
  Transmission Date: 20211014
  Serious: Yes (Other)
  Sender: FDA-Public Use
  Company Number: NVSC2021DE177340

PATIENT
  Age: 40 Year
  Sex: Female

DRUGS (16)
  1. HEPATITIS B VACCINE [Suspect]
     Active Substance: HEPATITIS B VIRUS VACCINE
     Indication: IMMUNISATION
     Dosage: UNK
     Route: 065
  2. L?THYROX [Concomitant]
     Active Substance: LEVOTHYROXINE SODIUM
     Indication: PRODUCT USED FOR UNKNOWN INDICATION
     Dosage: 75 UG
     Route: 065
  3. BETMIGA [Concomitant]
     Active Substance: MIRABEGRON
     Indication: PRODUCT USED FOR UNKNOWN INDICATION
     Dosage: UNK (UNKNOWN)
     Route: 065
  4. URIVESC [Concomitant]
     Active Substance: TROSPIUM CHLORIDE
     Indication: PRODUCT USED FOR UNKNOWN INDICATION
  5. DULOXETINE. [Concomitant]
     Active Substance: DULOXETINE
     Indication: PRODUCT USED FOR UNKNOWN INDICATION
  6. URIVESC [Concomitant]
     Active Substance: TROSPIUM CHLORIDE
     Indication: PRODUCT USED FOR UNKNOWN INDICATION
     Dosage: UNK (UNKNOWN)
     Route: 065
  7. ESCITALOPRAM [Concomitant]
     Active Substance: ESCITALOPRAM OXALATE
     Indication: PRODUCT USED FOR UNKNOWN INDICATION
     Dosage: 20MG
     Route: 065
  8. SELENASE [Concomitant]
     Indication: PRODUCT USED FOR UNKNOWN INDICATION
     Dosage: UNK UNKNOWN (UNKNOWN)
     Route: 065
  9. THYROX [Concomitant]
     Indication: PRODUCT USED FOR UNKNOWN INDICATION
     Dosage: UNK
     Route: 065
  10. COMIRNATY [Suspect]
     Active Substance: TOZINAMERAN
     Indication: COVID-19 IMMUNISATION
     Dosage: UNK UNK, QD (DOSE 2, SINGLE)
     Route: 065
     Dates: start: 20210525, end: 20210525
  11. DULOXETINE. [Concomitant]
     Active Substance: DULOXETINE
     Indication: PRODUCT USED FOR UNKNOWN INDICATION
     Dosage: UNK (UNKNOWN)
     Route: 065
  12. PYOLYSIN [Concomitant]
     Indication: WOUND
     Dosage: UNK (UNKNOWN)
     Route: 065
  13. ACICLOVIR [Suspect]
     Active Substance: ACYCLOVIR
     Indication: PRODUCT USED FOR UNKNOWN INDICATION
     Dosage: UNK (UNKNOWN)
     Route: 065
  14. METHYLSULFONYLMETHANE [Concomitant]
     Active Substance: DIMETHYL SULFONE
     Indication: PRODUCT USED FOR UNKNOWN INDICATION
     Dosage: UNK (UNKNOWN)
     Route: 065
  15. CORTISONE [Concomitant]
     Active Substance: CORTISONE
     Indication: PREMEDICATION
     Dosage: UNK (UNKNOWN)
     Route: 065
     Dates: start: 20200305, end: 20200305
  16. ATOSIL [Concomitant]
     Indication: PRODUCT USED FOR UNKNOWN INDICATION
     Dosage: 75UNKNOWN
     Route: 065

REACTIONS (20)
  - Multiple sclerosis [Not Recovered/Not Resolved]
  - Reaction to excipient [Not Recovered/Not Resolved]
  - Burning sensation [Not Recovered/Not Resolved]
  - Urinary incontinence [Not Recovered/Not Resolved]
  - Hypoaesthesia [Not Recovered/Not Resolved]
  - Prurigo [Not Recovered/Not Resolved]
  - Hot flush [Recovered/Resolved]
  - Hypersensitivity [Not Recovered/Not Resolved]
  - Genital herpes [Recovered/Resolved]
  - Inflammation [Not Recovered/Not Resolved]
  - Skin odour abnormal [Recovered/Resolved]
  - Alopecia [Recovered/Resolved]
  - B-lymphocyte count increased [Recovered/Resolved]
  - Dermatitis allergic [Unknown]
  - Dry skin [Recovered/Resolved]
  - Vulvovaginitis [Not Recovered/Not Resolved]
  - Sciatica [Not Recovered/Not Resolved]
  - Genital tract inflammation [Not Recovered/Not Resolved]
  - Rhinorrhoea [Recovered/Resolved]
  - Fatigue [Not Recovered/Not Resolved]

NARRATIVE: CASE EVENT DATE: 20190806
